FAERS Safety Report 7193911-8 (Version None)
Quarter: 2010Q4

REPORT INFORMATION
  Report Type: 
  Country: None (occurrence: None)
  Receive Date: 20101223
  Receipt Date: 20101216
  Transmission Date: 20110411
  Serious: Yes (Hospitalization)
  Sender: FDA-Public Use
  Company Number: GB-JNJFOC-20101206071

PATIENT
  Sex: Male

DRUGS (1)
  1. REMICADE [Suspect]
     Indication: PRODUCT USED FOR UNKNOWN INDICATION
     Route: 042

REACTIONS (6)
  - ABDOMINAL PAIN [None]
  - BALANCE DISORDER [None]
  - LETHARGY [None]
  - MIGRAINE [None]
  - VOMITING [None]
  - WEIGHT DECREASED [None]
